FAERS Safety Report 8809038 (Version 1)
Quarter: 2012Q4

REPORT INFORMATION
  Report Type: 
  Country: BR (occurrence: BR)
  Receive Date: 20120926
  Receipt Date: 20120926
  Transmission Date: 20130627
  Serious: Yes (Hospitalization)
  Sender: FDA-Public Use
  Company Number: BR-ASTRAZENECA-2012SE72637

PATIENT
  Age: 76 Year
  Sex: Female
  Weight: 93 kg

DRUGS (2)
  1. SELOZOK [Suspect]
     Route: 048
     Dates: start: 2006
  2. SELOZOK [Suspect]
     Route: 048
     Dates: start: 2006

REACTIONS (3)
  - Breast cancer [Recovered/Resolved]
  - Weight increased [Not Recovered/Not Resolved]
  - Off label use [Not Recovered/Not Resolved]
